FAERS Safety Report 9777570 (Version 3)
Quarter: 2019Q1

REPORT INFORMATION
  Report Type: Report from Study
  Country: GB (occurrence: GB)
  Receive Date: 20131222
  Receipt Date: 20190110
  Transmission Date: 20190418
  Serious: Yes (Hospitalization)
  Sender: FDA-Public Use
  Company Number: GB-BIOMARINAP-GB-2013-101905

PATIENT
  Age: 4 Year
  Sex: Male
  Weight: 17.5 kg

DRUGS (2)
  1. NAGLAZYME [Suspect]
     Active Substance: GALSULFASE
     Indication: MUCOPOLYSACCHARIDOSIS VI
     Dosage: 15 MG, QOW
     Route: 041
     Dates: start: 20100707
  2. NAGLAZYME [Suspect]
     Active Substance: GALSULFASE
     Dosage: 20 MG, QOW
     Route: 041

REACTIONS (1)
  - Spinal cord compression [Recovered/Resolved]

NARRATIVE: CASE EVENT DATE: 20130802
